FAERS Safety Report 4679821-6 (Version None)
Quarter: 2005Q2

REPORT INFORMATION
  Report Type: 
  Country: None (occurrence: None)
  Receive Date: 20050531
  Receipt Date: 20050517
  Transmission Date: 20051028
  Serious: Yes (Other)
  Sender: FDA-Public Use
  Company Number: B0380667A

PATIENT
  Age: 29 Year
  Sex: Female

DRUGS (4)
  1. PAXIL [Suspect]
  2. METHADONE HCL [Suspect]
     Indication: DRUG DEPENDENCE
     Dosage: VARIABLE DOSE
     Dates: start: 19981001
  3. METHOTRIMEPRAZINE (METHOTRIMEPRAZINE) [Suspect]
  4. TEMAZEPAM [Suspect]

REACTIONS (8)
  - ABNORMAL DREAMS [None]
  - ASTHENIA [None]
  - HYPNAGOGIC HALLUCINATION [None]
  - HYPNOPOMPIC HALLUCINATION [None]
  - NIGHTMARE [None]
  - OEDEMA PERIPHERAL [None]
  - SLEEP APNOEA SYNDROME [None]
  - SLEEP DISORDER [None]
